FAERS Safety Report 5981210-9 (Version None)
Quarter: 2008Q4

REPORT INFORMATION
  Report Type: 
  Country: None (occurrence: None)
  Receive Date: 20081205
  Receipt Date: 20081128
  Transmission Date: 20090506
  Serious: Yes (Other)
  Sender: FDA-Public Use
  Company Number: B0549136A

PATIENT
  Age: 18 Year
  Sex: Female

DRUGS (2)
  1. PAROXETINE HCL [Suspect]
     Indication: DEPRESSION
     Dosage: 20MG PER DAY
     Route: 048
     Dates: start: 20081104, end: 20081111
  2. CONTRACEPTIVE PILL [Concomitant]
     Route: 048

REACTIONS (5)
  - FATIGUE [None]
  - HALLUCINATION [None]
  - PANIC REACTION [None]
  - SOMNOLENCE [None]
  - SUICIDAL IDEATION [None]
